FAERS Safety Report 23033629 (Version 1)
Quarter: 2023Q4

REPORT INFORMATION
  Report Type: Spontaneous
  Country: US (occurrence: None)
  Receive Date: 20231004
  Receipt Date: 20231004
  Transmission Date: 20240110
  Serious: Yes (Other)
  Sender: FDA-Public Use
  Company Number: None

PATIENT
  Age: 78 Year
  Sex: Female
  Weight: 71.1 kg

DRUGS (10)
  1. ATORVASTATIN [Suspect]
     Active Substance: ATORVASTATIN
     Indication: Blood cholesterol increased
     Dosage: OTHER QUANTITY : 1 TABLET(S);?FREQUENCY : AT BEDTIME;?
     Route: 048
     Dates: start: 20230801, end: 20231002
  2. GABAPENTIN [Concomitant]
     Active Substance: GABAPENTIN
  3. HYDROCHLOROTHIAZIDE [Concomitant]
     Active Substance: HYDROCHLOROTHIAZIDE
  4. LEVOTHYROXINE [Concomitant]
     Active Substance: LEVOTHYROXINE
  5. NABUMETONE [Concomitant]
     Active Substance: NABUMETONE
  6. TYLENOL [Concomitant]
     Active Substance: ACETAMINOPHEN
  7. MELATONIN [Concomitant]
     Active Substance: MELATONIN
  8. DIPHENHYDRAMINE [Concomitant]
     Active Substance: DIPHENHYDRAMINE
  9. FISH OIL [Concomitant]
     Active Substance: FISH OIL
  10. EmergenCee drink [Concomitant]

REACTIONS (11)
  - Confusional state [None]
  - Hypoacusis [None]
  - Speech disorder [None]
  - Aggression [None]
  - Hypoaesthesia [None]
  - Family stress [None]
  - Suicidal ideation [None]
  - Anxiety [None]
  - Aggression [None]
  - Therapy cessation [None]
  - Product complaint [None]

NARRATIVE: CASE EVENT DATE: 20231001
